FAERS Safety Report 20015917 (Version 1)
Quarter: 2021Q4

REPORT INFORMATION
  Report Type: Spontaneous
  Country: US (occurrence: None)
  Receive Date: 20211102
  Receipt Date: 20211102
  Transmission Date: 20220303
  Serious: No
  Sender: FDA-Public Use
  Company Number: None

PATIENT
  Age: 34 Year
  Sex: Male
  Weight: 100 kg

DRUGS (8)
  1. BARICITINIB [Suspect]
     Active Substance: BARICITINIB
     Indication: COVID-19
     Dosage: FREQUENCY : DAILY;?
     Route: 048
     Dates: start: 20211029, end: 20211101
  2. DEXAMETHASONE [Concomitant]
     Active Substance: DEXAMETHASONE
     Dates: start: 20211028
  3. NOVOLOG [Concomitant]
     Active Substance: INSULIN ASPART
     Dates: start: 20211029
  4. ENOXAPARIN [Concomitant]
     Active Substance: ENOXAPARIN
     Dates: start: 20211029, end: 20211101
  5. NOVOLOG [Concomitant]
     Active Substance: INSULIN ASPART
     Dates: start: 20211029
  6. LANTUS [Concomitant]
     Active Substance: INSULIN GLARGINE
     Dates: start: 20210827
  7. OXYCODONE [Concomitant]
     Active Substance: OXYCODONE
     Dates: start: 20211029
  8. REMDESIVIR [Concomitant]
     Active Substance: REMDESIVIR
     Dates: start: 20211029, end: 20211102

REACTIONS (1)
  - Pulmonary embolism [None]

NARRATIVE: CASE EVENT DATE: 20211101
